FAERS Safety Report 4643300-2 (Version None)
Quarter: 2005Q2

REPORT INFORMATION
  Report Type: 
  Country: None (occurrence: None)
  Receive Date: 20050422
  Receipt Date: 20050406
  Transmission Date: 20051028
  Serious: Yes (Hospitalization)
  Sender: FDA-Public Use
  Company Number: RCZYME 62

PATIENT
  Age: 35 Year
  Sex: Female
  Weight: 47 kg

DRUGS (3)
  1. CEREZYME [Suspect]
     Indication: GAUCHER'S DISEASE
     Dosage: 2800 UNITS Q2WKS  IV
     Route: 042
     Dates: start: 19990101, end: 20030501
  2. CEREZYME [Suspect]
     Indication: GAUCHER'S DISEASE
     Dosage: 60 U/KG Q2WKS IV
     Route: 042
     Dates: start: 19940901, end: 19980112
  3. CEREZYME [Suspect]
     Indication: GAUCHER'S DISEASE
     Dates: start: 19980618

REACTIONS (5)
  - LUNG DISORDER [None]
  - NEPHROTIC SYNDROME [None]
  - OEDEMA [None]
  - PULMONARY HYPERTENSION [None]
  - RASH [None]
